FAERS Safety Report 16748005 (Version 3)
Quarter: 2022Q2

REPORT INFORMATION
  Report Type: Spontaneous
  Country: US (occurrence: US)
  Receive Date: 20190827
  Receipt Date: 20220425
  Transmission Date: 20220720
  Serious: Yes (Hospitalization)
  Sender: FDA-Public Use
  Company Number: US-TEVA-2019-US-1098671

PATIENT
  Age: 28 Year
  Sex: Male

DRUGS (11)
  1. PREDNISONE [Suspect]
     Active Substance: PREDNISONE
     Indication: Graft versus host disease
     Route: 065
  2. CYTARABINE [Suspect]
     Active Substance: CYTARABINE
     Indication: Acute myeloid leukaemia
     Dosage: ^7 + 3^ CHEMOTHERAPY REGIMEN (CONSISTING OF 7 DAYS OF STANDARD-DOSE CYTARABINE PLUS 3 D...
     Route: 065
  3. CYTARABINE [Suspect]
     Active Substance: CYTARABINE
     Indication: Acute myeloid leukaemia
     Dosage: 3 G/M2 AS AS CONSOLIDATION THERAPY
     Route: 065
  4. IDARUBICIN [Suspect]
     Active Substance: IDARUBICIN
     Indication: Acute myeloid leukaemia
     Dosage: ^7 + 3^ CHEMOTHERAPY REGIMEN (CONSISTING OF 7 DAYS OF STANDARD-DOSE CYTARABINE PLUS 3 D...
     Route: 065
  5. AZACITIDINE [Suspect]
     Active Substance: AZACITIDINE
     Indication: Acute myeloid leukaemia
     Dosage: 3 CYCLES
     Route: 065
  6. BUSULFAN [Suspect]
     Active Substance: BUSULFAN
     Indication: Acute myeloid leukaemia
     Dosage: 6000 MICROMOL MIN EVERY 24H FOR 4 CONSECUTIVE DAYS
     Route: 065
  7. FLUDARABINE [Suspect]
     Active Substance: FLUDARABINE PHOSPHATE
     Indication: Acute myeloid leukaemia
     Dosage: FOR 4 CONSECUTIVE DAYS
     Route: 065
  8. SORAFENIB [Suspect]
     Active Substance: SORAFENIB
     Indication: Acute myeloid leukaemia
     Dosage: 200 MILLIGRAM DAILY;
     Route: 065
  9. THYMOCYTE IMMUNE GLOBULIN NOS [Suspect]
     Active Substance: THYMOCYTE IMMUNE GLOBULIN NOS
     Indication: Acute myeloid leukaemia
     Route: 065
  10. QUIZARTINIB [Suspect]
     Active Substance: QUIZARTINIB
     Indication: Acute myeloid leukaemia
     Route: 065
  11. TACROLIMUS [Concomitant]
     Active Substance: TACROLIMUS
     Route: 065

REACTIONS (15)
  - Adrenal insufficiency [Unknown]
  - Hyperglycaemia [Unknown]
  - Osteonecrosis [Unknown]
  - Hypertension [Unknown]
  - Cardiac ventricular thrombosis [Unknown]
  - Systolic dysfunction [Unknown]
  - Angiopathy [Recovering/Resolving]
  - Cardiomyopathy [Recovering/Resolving]
  - Coronary artery disease [Recovering/Resolving]
  - Coronary artery stenosis [Recovering/Resolving]
  - Peripheral artery stenosis [Recovering/Resolving]
  - Arterial stenosis [Recovering/Resolving]
  - Peripheral arterial occlusive disease [Recovering/Resolving]
  - Cardiac failure [Recovering/Resolving]
  - Off label use [Unknown]
